FAERS Safety Report 14662767 (Version 1)
Quarter: 2018Q1

REPORT INFORMATION
  Report Type: Spontaneous
  Country: US (occurrence: US)
  Receive Date: 20180321
  Receipt Date: 20180321
  Transmission Date: 20180509
  Serious: Yes (Hospitalization, Other)
  Sender: FDA-Public Use
  Company Number: US-ZYDUS-019300

PATIENT
  Age: 23 Year
  Sex: Female

DRUGS (1)
  1. LAMOTRIGINE. [Suspect]
     Active Substance: LAMOTRIGINE
     Indication: PRODUCT USED FOR UNKNOWN INDICATION
     Route: 065

REACTIONS (18)
  - Ejection fraction decreased [Recovered/Resolved]
  - Lymphocytosis [Recovered/Resolved]
  - Drug reaction with eosinophilia and systemic symptoms [Recovered/Resolved]
  - Lymphadenopathy [Recovered/Resolved]
  - Pyrexia [Recovered/Resolved]
  - Brain natriuretic peptide increased [Recovered/Resolved]
  - Troponin increased [Recovered/Resolved]
  - Inflammation [Recovered/Resolved]
  - Diarrhoea [Recovered/Resolved]
  - Dyspnoea [Recovered/Resolved]
  - Myocarditis [Recovered/Resolved]
  - Face oedema [Recovered/Resolved]
  - Rash erythematous [Recovered/Resolved]
  - Cardiac failure [Recovered/Resolved]
  - Splenomegaly [Recovered/Resolved]
  - Transaminases increased [Recovered/Resolved]
  - Eosinophilia [Recovered/Resolved]
  - Night sweats [Recovered/Resolved]
